FAERS Safety Report 10877179 (Version 1)
Quarter: 2015Q1

REPORT INFORMATION
  Report Type: Spontaneous
  Country: US (occurrence: US)
  Receive Date: 20150302
  Receipt Date: 20150302
  Transmission Date: 20150721
  Serious: No
  Sender: FDA-Public Use
  Company Number: US-009507513-1502USA009577

PATIENT
  Age: 46 Year
  Sex: Female

DRUGS (6)
  1. DECADRON [Concomitant]
     Active Substance: DEXAMETHASONE
  2. CLARITIN [Concomitant]
     Active Substance: LORATADINE
  3. ATIVAN [Concomitant]
     Active Substance: LORAZEPAM
  4. EMEND (FOSAPREPITANT DIMEGLUMINE) [Suspect]
     Active Substance: FOSAPREPITANT DIMEGLUMINE
     Indication: CHEMOTHERAPY
     Dosage: UNK
     Route: 042
     Dates: start: 20150210, end: 20150210
  5. NEUPOGEN [Concomitant]
     Active Substance: FILGRASTIM
  6. KYTRIL [Concomitant]
     Active Substance: GRANISETRON HYDROCHLORIDE

REACTIONS (2)
  - Injection site erythema [Not Recovered/Not Resolved]
  - Injection site pain [Not Recovered/Not Resolved]

NARRATIVE: CASE EVENT DATE: 20150217
